FAERS Safety Report 6390735-6 (Version None)
Quarter: 2009Q4

REPORT INFORMATION
  Report Type: 
  Country: None (occurrence: None)
  Receive Date: 20091006
  Receipt Date: 20090924
  Transmission Date: 20100525
  Serious: Yes (Other)
  Sender: FDA-Public Use
  Company Number: PHEH2009US12007

PATIENT
  Sex: Female

DRUGS (1)
  1. GENTEAL (NVO) [Suspect]

REACTIONS (3)
  - EYE IRRITATION [None]
  - EYE LASER SURGERY [None]
  - EYE PAIN [None]
